FAERS Safety Report 25322199 (Version 2)
Quarter: 2025Q2

REPORT INFORMATION
  Report Type: Spontaneous
  Country: US (occurrence: US)
  Receive Date: 20250516
  Receipt Date: 20250611
  Transmission Date: 20250717
  Serious: No
  Sender: CIPLA
  Company Number: US-CIPLA LTD.-2025US05435

PATIENT

DRUGS (2)
  1. ALENDRONATE [Suspect]
     Active Substance: ALENDRONATE SODIUM
     Indication: Product used for unknown indication
     Route: 065
     Dates: start: 202504
  2. ALENDRONATE [Suspect]
     Active Substance: ALENDRONATE SODIUM
     Route: 065
     Dates: start: 202504, end: 2025

REACTIONS (4)
  - Arthralgia [Recovering/Resolving]
  - Mobility decreased [Unknown]
  - Gait disturbance [Unknown]
  - Myalgia [Unknown]

NARRATIVE: CASE EVENT DATE: 20250401
